FAERS Safety Report 9686071 (Version 2)
Quarter: 2013Q4

REPORT INFORMATION
  Report Type: Spontaneous
  Country: US (occurrence: US)
  Receive Date: 20131113
  Receipt Date: 20131113
  Transmission Date: 20140711
  Serious: No
  Sender: FDA-Public Use
  Company Number: US-ALLERGAN-1215071US

PATIENT
  Sex: Female

DRUGS (7)
  1. COMBIGAN[R] [Suspect]
     Indication: GLAUCOMA
     Dosage: 2 GTT, BID
     Route: 047
  2. LUMIGAN [Concomitant]
     Indication: GLAUCOMA
     Dosage: UNK
  3. KELP                               /01214901/ [Concomitant]
     Indication: SUPPLEMENTATION THERAPY
  4. VITAMIN C                          /00008001/ [Concomitant]
     Indication: SUPPLEMENTATION THERAPY
  5. FISH OIL [Concomitant]
     Indication: SUPPLEMENTATION THERAPY
  6. GARLIC                             /01570501/ [Concomitant]
     Indication: SUPPLEMENTATION THERAPY
  7. BILBERRY                           /01397601/ [Concomitant]
     Indication: SUPPLEMENTATION THERAPY

REACTIONS (2)
  - Headache [Unknown]
  - Vision blurred [Unknown]
